FAERS Safety Report 23841473 (Version 1)
Quarter: 2024Q2

REPORT INFORMATION
  Report Type: Spontaneous
  Country: US (occurrence: US)
  Receive Date: 20240510
  Receipt Date: 20240510
  Transmission Date: 20240715
  Serious: Yes (Other)
  Sender: FDA-Public Use
  Company Number: US-DRL-USA-LIT/USA/24/0006877

PATIENT
  Age: 21 Year
  Sex: Male

DRUGS (2)
  1. CYCLOSPORINE [Suspect]
     Active Substance: CYCLOSPORINE
     Indication: Uveitis
  2. INFLIXIMAB [Concomitant]
     Active Substance: INFLIXIMAB
     Indication: Uveitis
     Dosage: 10 MG/KG EVERY 8 WEEKS
     Route: 042

REACTIONS (1)
  - Drug ineffective for unapproved indication [Unknown]
